FAERS Safety Report 21648670 (Version 3)
Quarter: 2023Q2

REPORT INFORMATION
  Report Type: Report from Study
  Country: US (occurrence: US)
  Receive Date: 20221128
  Receipt Date: 20230527
  Transmission Date: 20230722
  Serious: Yes (Other)
  Sender: FDA-Public Use
  Company Number: US-002147023-NVSC2022US263208

PATIENT
  Sex: Male

DRUGS (1)
  1. ENTRESTO [Suspect]
     Active Substance: SACUBITRIL\VALSARTAN
     Indication: Product used for unknown indication
     Dosage: UNK
     Route: 065

REACTIONS (6)
  - Cerebrovascular accident [Unknown]
  - Neoplasm malignant [Recovering/Resolving]
  - Myocardial infarction [Recovering/Resolving]
  - Blindness [Unknown]
  - Cardiac disorder [Unknown]
  - Amnesia [Unknown]
